FAERS Safety Report 7256110-7 (Version None)
Quarter: 2011Q1

REPORT INFORMATION
  Report Type: 
  Country: None (occurrence: None)
  Receive Date: 20110129
  Receipt Date: 20100509
  Transmission Date: 20110831
  Serious: No
  Sender: FDA-Public Use
  Company Number: US-ABBOTT-10P-163-0643287-00

PATIENT
  Age: 28 Year
  Sex: Female

DRUGS (2)
  1. HUMIRA [Suspect]
     Indication: PSORIATIC ARTHROPATHY
     Route: 058
     Dates: start: 20100201
  2. HUMIRA [Suspect]
     Indication: RHEUMATOID ARTHRITIS

REACTIONS (7)
  - HEADACHE [None]
  - PAIN IN EXTREMITY [None]
  - DELIRIUM [None]
  - NAUSEA [None]
  - MALAISE [None]
  - FATIGUE [None]
  - DRUG INEFFECTIVE [None]
